FAERS Safety Report 5251521-3 (Version None)
Quarter: 2007Q1

REPORT INFORMATION
  Report Type: 
  Country: None (occurrence: None)
  Receive Date: 20070228
  Receipt Date: 20060522
  Transmission Date: 20070707
  Serious: Yes (Other)
  Sender: FDA-Public Use
  Company Number: US-GLAXOSMITHKLINE-A0606537A

PATIENT
  Sex: Male

DRUGS (2)
  1. LAMICTAL [Suspect]
     Indication: EPILEPSY
     Dosage: 75MG TWICE PER DAY
     Route: 048
     Dates: end: 20060501
  2. NO CONCURRENT MEDICATION [Concomitant]

REACTIONS (3)
  - HEPATIC ENZYME INCREASED [None]
  - PLATELET COUNT DECREASED [None]
  - PYREXIA [None]
